FAERS Safety Report 7523106-7 (Version None)
Quarter: 2011Q2

REPORT INFORMATION
  Report Type: 
  Country: None (occurrence: None)
  Receive Date: 20110525
  Receipt Date: 20110517
  Transmission Date: 20111010
  Serious: Yes (Disabling)
  Sender: FDA-Public Use
  Company Number: 2011SP021940

PATIENT
  Age: 15 Year
  Sex: Male

DRUGS (2)
  1. NASONEX [Suspect]
     Indication: MULTIPLE ALLERGIES
     Dosage: QD, NAS
     Route: 045
  2. LORATADINE [Concomitant]

REACTIONS (1)
  - ANOSMIA [None]
